FAERS Safety Report 12067848 (Version 1)
Quarter: 2016Q1

REPORT INFORMATION
  Report Type: Spontaneous
  Country: US (occurrence: US)
  Receive Date: 20160211
  Receipt Date: 20160211
  Transmission Date: 20160526
  Serious: No
  Sender: FDA-Public Use
  Company Number: US-SMITH AND NEPHEW, INC-2015SMT00100

PATIENT
  Age: 57 Year
  Sex: Male
  Weight: 86.17 kg

DRUGS (5)
  1. UNSPECIFIED BLOOD PRESSURE MEDICATIONS [Concomitant]
  2. PLAVIX [Concomitant]
     Active Substance: CLOPIDOGREL BISULFATE
  3. INSULIN PUMP [Concomitant]
     Active Substance: INSULIN NOS
  4. BABY ASPIRIN [Concomitant]
     Active Substance: ASPIRIN
  5. REGRANEX [Suspect]
     Active Substance: BECAPLERMIN
     Indication: IMPAIRED HEALING
     Dosage: 1 DOSAGE UNITS, 1X/DAY
     Route: 061
     Dates: start: 20150513

REACTIONS (1)
  - Erythema [Unknown]

NARRATIVE: CASE EVENT DATE: 20150514
